FAERS Safety Report 4796478-4 (Version None)
Quarter: 2005Q4

REPORT INFORMATION
  Report Type: 
  Country: None (occurrence: None)
  Receive Date: 20051011
  Receipt Date: 20050719
  Transmission Date: 20060501
  Serious: Yes (Other)
  Sender: FDA-Public Use
  Company Number: 2005-07-1339

PATIENT
  Sex: Female

DRUGS (1)
  1. TEMODAR [Suspect]
     Dosage: ORAL
     Route: 048

REACTIONS (2)
  - LEUKOPENIA [None]
  - THROMBOCYTOPENIA [None]
